FAERS Safety Report 4551981-7 (Version None)
Quarter: 2005Q1

REPORT INFORMATION
  Report Type: 
  Country: None (occurrence: None)
  Receive Date: 20050112
  Receipt Date: 20041227
  Transmission Date: 20050727
  Serious: Yes (Hospitalization)
  Sender: FDA-Public Use
  Company Number: A02200403854

PATIENT
  Age: 87 Year
  Sex: Male

DRUGS (11)
  1. CALCIPARINE [Suspect]
     Indication: PHLEBITIS
     Dosage: 0.3 ML TID, SUBCUTANEOUS
     Route: 058
     Dates: end: 20041201
  2. XATRAL - (ALFUZOSIN) - TABLET [Suspect]
     Dosage: ORAL
     Route: 048
  3. KAYEXALATE (SODIUM POLYSTYRENE SULFONATE) - POWDER - 15 MG [Suspect]
  4. CORTANCYL (PREDNISONE) - TABLET - 5MG [Suspect]
     Indication: CHRONIC LYMPHOCYTIC LEUKAEMIA
     Dosage: 5 MG OD, ORAL
     Route: 048
  5. FUROSEMIDE [Suspect]
     Dosage: 20 MG OD, ORAL
     Route: 048
  6. CHLORAMINOPHENE ^TECHNI-PHARMA^ - (CHLORAMBUCIL) - CAPSULE - 2 MG [Suspect]
     Indication: CHRONIC LYMPHOCYTIC LEUKAEMIA
     Dosage: 2 MG 3/WEEK, ORAL
     Route: 048
  7. OMEPRAZOLE [Suspect]
     Dosage: 20 MG OD, ORAL
     Route: 048
     Dates: end: 20041203
  8. ACETAMINOPHEN [Suspect]
  9. FORLAX - (MACROGOL) - POWDER - 10 G [Suspect]
     Dosage: IG TID
     Route: 048
  10. IMOVANE - (ZOPICLONE) - TABLET [Suspect]
     Dosage: ORAL
     Route: 048
  11. BRICANYL [Suspect]
     Dosage: RESPIRATORY (INHALATION)
     Route: 055

REACTIONS (3)
  - CONDITION AGGRAVATED [None]
  - RENAL CYST [None]
  - RENAL FAILURE ACUTE [None]
